FAERS Safety Report 11393322 (Version 4)
Quarter: 2017Q2

REPORT INFORMATION
  Report Type: Report from Study
  Country: NL (occurrence: NL)
  Receive Date: 20150818
  Receipt Date: 20170530
  Transmission Date: 20170829
  Serious: Yes (Death, Hospitalization)
  Sender: FDA-Public Use
  Company Number: PHHO2015NL012763

PATIENT
  Age: 87 Year
  Sex: Male
  Weight: 78 kg

DRUGS (11)
  1. SPIRONOLACTONE. [Suspect]
     Active Substance: SPIRONOLACTONE
     Indication: CARDIOVASCULAR EVENT PROPHYLAXIS
     Dosage: 25 MG, QD
     Route: 048
     Dates: start: 2010
  2. RLX030 [Suspect]
     Active Substance: SERELAXIN
     Indication: CARDIAC FAILURE ACUTE
     Dosage: 30 UG/KG, QD
     Route: 042
     Dates: start: 20150715, end: 20150717
  3. FERROUS FUMARATE [Concomitant]
     Active Substance: FERROUS FUMARATE
     Indication: SUPPLEMENTATION THERAPY
     Dosage: 200 MG, BID
     Route: 048
     Dates: start: 2011
  4. ETALPHA [Concomitant]
     Active Substance: ALFACALCIDOL
     Indication: OSTEODYSTROPHY
     Dosage: 0.25 UG, QD
     Route: 048
     Dates: start: 2013
  5. PANTOPRAZOL [Concomitant]
     Active Substance: PANTOPRAZOLE SODIUM
     Indication: PRODUCT USED FOR UNKNOWN INDICATION
     Dosage: 40 MG, QD
     Route: 048
     Dates: start: 2008
  6. BURINEX [Concomitant]
     Active Substance: BUMETANIDE
     Indication: CARDIAC FAILURE
     Dosage: UNK
     Route: 042
     Dates: start: 2011
  7. BUMETANIDE. [Suspect]
     Active Substance: BUMETANIDE
     Dosage: 1 MG, QD
     Route: 048
  8. SELOKEEN [Concomitant]
     Active Substance: METOPROLOL
     Indication: CARDIOVASCULAR EVENT PROPHYLAXIS
     Dosage: 95 MG, BID
     Route: 048
     Dates: start: 1998
  9. ACENOCOUMAROL [Concomitant]
     Active Substance: ACENOCOUMAROL
     Indication: CARDIOVASCULAR EVENT PROPHYLAXIS
     Dosage: UNK
     Route: 065
     Dates: start: 1998
  10. BUMETANIDE. [Suspect]
     Active Substance: BUMETANIDE
     Indication: CARDIOVASCULAR EVENT PROPHYLAXIS
     Dosage: UNK
     Route: 048
     Dates: start: 2007
  11. BUMETANIDE. [Suspect]
     Active Substance: BUMETANIDE
     Dosage: 3 MG, QOD (1DD, 1MG AND 2DD, 1MG)
     Route: 048

REACTIONS (3)
  - Cardiac failure [Fatal]
  - Dehydration [Recovered/Resolved with Sequelae]
  - Cardiac failure [Recovered/Resolved]

NARRATIVE: CASE EVENT DATE: 20150715
